FAERS Safety Report 25207413 (Version 1)
Quarter: 2025Q2

REPORT INFORMATION
  Report Type: Spontaneous
  Country: CN (occurrence: CN)
  Receive Date: 20250417
  Receipt Date: 20250417
  Transmission Date: 20250717
  Serious: Yes (Hospitalization, Other)
  Sender: BAXTER
  Company Number: None

PATIENT
  Age: 35 Year
  Sex: Female
  Weight: 44 kg

DRUGS (4)
  1. CYCLOPHOSPHAMIDE [Suspect]
     Active Substance: CYCLOPHOSPHAMIDE
     Indication: Breast cancer female
     Dosage: 850 MG, QD
     Route: 041
     Dates: start: 20250321, end: 20250321
  2. EPIRUBICIN [Suspect]
     Active Substance: EPIRUBICIN
     Indication: Breast cancer female
     Dosage: 130 MG, QD
     Route: 041
     Dates: start: 20250321, end: 20250321
  3. SODIUM CHLORIDE [Suspect]
     Active Substance: SODIUM CHLORIDE
     Indication: Medication dilution
     Dosage: 100 ML, QD, (WITH CYCLOPHOSPHAMIDE FOR INJECTION 850MG INTRAVENOUS DRIP)
     Route: 041
     Dates: start: 20250321, end: 20250321
  4. SODIUM CHLORIDE [Suspect]
     Active Substance: SODIUM CHLORIDE
     Dosage: 100 ML, QD, (WITH EPIRUBICIN HYDROCHLORIDE FOR INJECTION 130MG VIA INTRAVENOUS DRIP)
     Route: 041
     Dates: start: 20250321, end: 20250321

REACTIONS (3)
  - Drug-induced liver injury [Unknown]
  - Hepatic function abnormal [Recovering/Resolving]
  - Transaminases abnormal [Recovering/Resolving]

NARRATIVE: CASE EVENT DATE: 20250407
